FAERS Safety Report 20108682 (Version 2)
Quarter: 2021Q4

REPORT INFORMATION
  Report Type: Spontaneous
  Country: TW (occurrence: TW)
  Receive Date: 20211124
  Receipt Date: 20211227
  Transmission Date: 20220303
  Serious: Yes (Other)
  Sender: FDA-Public Use
  Company Number: TW-BAYER-2021A254545

PATIENT
  Age: 34 Year
  Sex: Female

DRUGS (5)
  1. DIENOGEST [Suspect]
     Active Substance: DIENOGEST
     Indication: Adenomyosis
     Dosage: UNK
     Dates: start: 202107
  2. YASMIN [Suspect]
     Active Substance: DROSPIRENONE\ETHINYL ESTRADIOL
     Indication: Heavy menstrual bleeding
     Dosage: UNK
     Route: 048
     Dates: start: 201908
  3. YASMIN [Suspect]
     Active Substance: DROSPIRENONE\ETHINYL ESTRADIOL
     Indication: Dysmenorrhoea
  4. YASMIN [Suspect]
     Active Substance: DROSPIRENONE\ETHINYL ESTRADIOL
     Indication: Adenomyosis
  5. MIRENA [Suspect]
     Active Substance: LEVONORGESTREL
     Indication: Adenomyosis
     Dosage: 20?G/DAY
     Route: 015
     Dates: start: 20210506, end: 20210614

REACTIONS (10)
  - Blood loss anaemia [Recovered/Resolved]
  - Heavy menstrual bleeding [Recovered/Resolved]
  - Device expulsion [Recovered/Resolved]
  - Intermenstrual bleeding [Recovered/Resolved]
  - Off label use [None]
  - Drug effective for unapproved indication [None]
  - Off label use of device [None]
  - Drug effective for unapproved indication [None]
  - Off label use [None]
  - Drug effective for unapproved indication [None]

NARRATIVE: CASE EVENT DATE: 20190101
